FAERS Safety Report 6100346-5 (Version None)
Quarter: 2009Q1

REPORT INFORMATION
  Report Type: 
  Country: None (occurrence: None)
  Receive Date: 20090303
  Receipt Date: 20090224
  Transmission Date: 20090719
  Serious: Yes (Other)
  Sender: FDA-Public Use
  Company Number: US-ELI_LILLY_AND_COMPANY-US200812006047

PATIENT
  Sex: Female
  Weight: 51.587 kg

DRUGS (5)
  1. CYMBALTA [Suspect]
     Indication: FIBROMYALGIA
     Dosage: 30 MG, DAILY (1/D)
     Dates: start: 20080902, end: 20080101
  2. CYMBALTA [Suspect]
     Dosage: 30 MG, QOD
     Dates: start: 20080101, end: 20081212
  3. NEURONTIN [Concomitant]
  4. FLAXSEED OIL [Concomitant]
  5. MOTRIN [Concomitant]

REACTIONS (6)
  - ABDOMINAL PAIN [None]
  - ALANINE AMINOTRANSFERASE INCREASED [None]
  - ASPARTATE AMINOTRANSFERASE INCREASED [None]
  - DEPRESSION [None]
  - GALLBLADDER DISORDER [None]
  - SUICIDAL IDEATION [None]
